FAERS Safety Report 18126137 (Version 1)
Quarter: 2020Q3

REPORT INFORMATION
  Report Type: Spontaneous
  Country: US (occurrence: US)
  Receive Date: 20200808
  Receipt Date: 20200808
  Transmission Date: 20201103
  Serious: Yes (Other)
  Sender: FDA-Public Use
  Company Number: US-NOVITIUMPHARMA-2020USNVP00019

PATIENT

DRUGS (4)
  1. DAPSONE. [Suspect]
     Active Substance: DAPSONE
     Indication: ANTIBIOTIC PROPHYLAXIS
  2. BLINATUMOMAB [Concomitant]
     Active Substance: BLINATUMOMAB
  3. METHOTREXATE. [Concomitant]
     Active Substance: METHOTREXATE
     Route: 037
  4. SULFAMETHOXAZOLE?TRIMETHOPRIM [Concomitant]
     Active Substance: SULFAMETHOXAZOLE\TRIMETHOPRIM

REACTIONS (5)
  - Hypoxia [Recovered/Resolved]
  - Dyspnoea exertional [Recovered/Resolved]
  - Skin discolouration [Recovered/Resolved]
  - Off label use [Unknown]
  - Methaemoglobinaemia [Recovered/Resolved]
